FAERS Safety Report 9274792 (Version 1)
Quarter: 2013Q2

REPORT INFORMATION
  Report Type: Spontaneous
  Country: NL (occurrence: NL)
  Receive Date: 20130507
  Receipt Date: 20130507
  Transmission Date: 20140414
  Serious: Yes (Hospitalization)
  Sender: FDA-Public Use
  Company Number: NL-BAYER-2013-053551

PATIENT
  Age: 73 Year
  Sex: Male

DRUGS (13)
  1. NEXAVAR 200 MG TABLET [Suspect]
     Indication: HEPATOCELLULAR CARCINOMA
     Dosage: 200 MG, BID
     Route: 048
     Dates: start: 20130301, end: 20130415
  2. TAMSULOSIN HYDROCHLORIDE [Concomitant]
     Dosage: 0.4 MG, QD
     Dates: start: 20130329
  3. VITAMIN B COMPLEX [Concomitant]
     Dosage: 1 DF, QD
     Dates: start: 20130125
  4. OXYNORM [Concomitant]
     Dosage: 1 DF
     Dates: start: 20130315
  5. OXYNORM [Concomitant]
     Dosage: 10 MG, BID
     Dates: start: 20130403
  6. NIFEDIPINE [Concomitant]
     Dosage: 60 MG, QD
     Dates: start: 20130314
  7. ATENOLOL [Concomitant]
     Dosage: 50 MG, QD
     Dates: start: 20130314
  8. THIAMINE [Concomitant]
     Dosage: 100 MG, QD
  9. METFORMINE [Concomitant]
     Dosage: 500 MG, BID
  10. PANTOPRAZOLE [Concomitant]
     Dosage: 40 MG, QD
     Dates: start: 20130411
  11. MACROGOL [Concomitant]
     Dosage: 1 DF, QD
     Dates: start: 20130306
  12. BEPANTHEN [Concomitant]
     Dosage: 1DF
  13. MORFINE [Concomitant]
     Dosage: 1DF
     Dates: start: 20130404

REACTIONS (2)
  - Renal failure acute [Recovering/Resolving]
  - Normochromic normocytic anaemia [Not Recovered/Not Resolved]
